FAERS Safety Report 11603448 (Version 1)
Quarter: 2015Q4

REPORT INFORMATION
  Report Type: Spontaneous
  Country: US (occurrence: None)
  Receive Date: 20151005
  Receipt Date: 20151005
  Transmission Date: 20160304
  Serious: Yes (Disabling)
  Sender: FDA-Public Use
  Company Number: None

PATIENT
  Age: 42 Year
  Sex: Female
  Weight: 54.43 kg

DRUGS (1)
  1. CYMBALTA [Suspect]
     Active Substance: DULOXETINE HYDROCHLORIDE
     Dosage: 20 OR 0 MG/DAY
     Route: 048

REACTIONS (9)
  - Quality of life decreased [None]
  - Nausea [None]
  - Rash [None]
  - Dizziness [None]
  - Impaired driving ability [None]
  - Hot flush [None]
  - Paraesthesia [None]
  - Fatigue [None]
  - Activities of daily living impaired [None]

NARRATIVE: CASE EVENT DATE: 20150915
